FAERS Safety Report 22538468 (Version 1)
Quarter: 2023Q2

REPORT INFORMATION
  Report Type: Spontaneous
  Country: US (occurrence: US)
  Receive Date: 20230609
  Receipt Date: 20230609
  Transmission Date: 20230721
  Serious: Yes (Other)
  Sender: FDA-Public Use
  Company Number: US-PFIZER INC-202300213053

PATIENT
  Age: 76 Year
  Sex: Female
  Weight: 74.84 kg

DRUGS (1)
  1. DIFLUCAN [Suspect]
     Active Substance: FLUCONAZOLE
     Dosage: 200 MG, 2X/DAY (HE TAKE ^200^ MILLIGRAMS TWICE A DAY ONE IN THE MORNING, ONE AT NIGHT)

REACTIONS (2)
  - Coccidioidomycosis [Unknown]
  - Product dose omission issue [Unknown]
